FAERS Safety Report 8980617 (Version 1)
Quarter: 2012Q4

REPORT INFORMATION
  Report Type: 
  Country: US (occurrence: US)
  Receive Date: 20121221
  Receipt Date: 20121221
  Transmission Date: 20130627
  Serious: Yes (Hospitalization)
  Sender: FDA-Public Use
  Company Number: US-BAYER-2012-133685

PATIENT
  Age: 34 Year
  Sex: Female

DRUGS (11)
  1. IBUPROFEN [Suspect]
     Indication: BONE PAIN
  2. NAPROXEN SODIUM ({= 220 MG) [Interacting]
     Indication: BONE PAIN
     Dosage: 440 mg, BID
  3. CITALOPRAM [Interacting]
     Indication: ANXIETY
     Dosage: Daily dose 20 mg
  4. CITALOPRAM [Interacting]
     Indication: ANXIETY
     Dosage: Daily dose 40 mg
  5. OXAPROZIN [Suspect]
     Indication: TROCHANTERIC BURSITIS
     Dosage: 600 mg, BID
  6. LORAZEPAM [Concomitant]
     Dosage: 1 mg, BID
  7. HYDROXYZINE PAMOATE [Concomitant]
     Dosage: 50-100 mg at bedtime
  8. ALBUTEROL [Concomitant]
     Indication: COUGH
     Dosage: 2 puffs every 4-6 hours
  9. ALBUTEROL [Concomitant]
     Indication: WHEEZING
  10. ESTRADIOL [Concomitant]
     Dosage: Daily dose 1 mg
  11. METHOCARBAMOL [Concomitant]
     Dosage: 500-1000 mg

REACTIONS (7)
  - Increased tendency to bruise [Recovering/Resolving]
  - Ecchymosis [Recovering/Resolving]
  - Impaired healing [None]
  - Excoriation [None]
  - Ecchymosis [Recovered/Resolved]
  - Increased tendency to bruise [Recovered/Resolved]
  - Drug interaction [None]
